FAERS Safety Report 9278379 (Version 1)
Quarter: 2012Q4

REPORT INFORMATION
  Report Type: Spontaneous
  Country: JP (occurrence: None)
  Receive Date: 20121109
  Receipt Date: 20121109
  Transmission Date: 20130627
  Serious: Yes (Death, Hospitalization)
  Sender: FDA-Public Use
  Company Number: 2012S1000762

PATIENT
  Age: 72 Year
  Sex: Female
  Weight: 43 kg

DRUGS (14)
  1. CUBICIN [Suspect]
     Indication: STAPHYLOCOCCAL SEPSIS
     Route: 042
     Dates: start: 20120815, end: 20120901
  2. LEUNASE [Suspect]
     Indication: ACUTE  LYMPHOCYTIC LEUKAEMIA
     Dosage: 3600 (UNDER 1000 UNIT) ; QD ; IV
     Route: 042
     Dates: start: 20120807, end: 20120818
  3. MEROPENEM [Concomitant]
  4. ISEPACIN [Concomitant]
  5. ONCOVIN [Concomitant]
  6. FIRSTCIN [Concomitant]
  7. NEUTROGIN [Concomitant]
  8. IMMUNOGLOBULIN [Concomitant]
  9. RAMIAN [Concomitant]
  10. MIXED AMINO ACID / CARBOHYDRATE ELECTROLYTE / VITAMIN [Concomitant]
  11. COMBINED OF 7 MEDICATIONS [Concomitant]
  12. NICERGOLINE [Concomitant]
  13. BETAHISTINE MESILATE [Concomitant]
  14. CEPHADOL [Concomitant]

REACTIONS (22)
  - Diabetic hyperosmolar coma [None]
  - Hypernatraemia [None]
  - Ammonia increased [None]
  - Blood creatine phosphokinase increased [None]
  - Body temperature increased [None]
  - Fatigue [None]
  - C-reactive protein increased [None]
  - Depressed level of consciousness [None]
  - Somnolence [None]
  - Blood pressure decreased [None]
  - Pallor [None]
  - Respiratory distress [None]
  - Blood chloride increased [None]
  - Renal impairment [None]
  - Peripheral coldness [None]
  - Dyspnoea [None]
  - Aspartate aminotransferase increased [None]
  - Alanine aminotransferase increased [None]
  - Blood lactate dehydrogenase increased [None]
  - Disseminated intravascular coagulation [None]
  - Blood albumin decreased [None]
  - Cardiac disorder [None]
